FAERS Safety Report 4455705-3 (Version None)
Quarter: 2004Q3

REPORT INFORMATION
  Report Type: 
  Country: None (occurrence: None)
  Receive Date: 20040917
  Receipt Date: 20040910
  Transmission Date: 20050211
  Serious: Yes (Hospitalization)
  Sender: FDA-Public Use
  Company Number: 2004232616FR

PATIENT
  Age: 38 Year
  Sex: Male

DRUGS (1)
  1. SULFASALAZINE [Suspect]
     Indication: ENTEROCOLITIS HAEMORRHAGIC
     Dosage: 3 G/DAY, ORAL
     Route: 048
     Dates: start: 20010501

REACTIONS (9)
  - C-REACTIVE PROTEIN INCREASED [None]
  - CYTOLYTIC HEPATITIS [None]
  - DRUG HYPERSENSITIVITY [None]
  - DRUG RASH WITH EOSINOPHILIA AND SYSTEMIC SYMPTOMS [None]
  - EOSINOPHILIA [None]
  - HEPATOMEGALY [None]
  - INFLAMMATION [None]
  - LEUKOCYTOSIS [None]
  - SPLENOMEGALY [None]
